FAERS Safety Report 6253904-1 (Version None)
Quarter: 2009Q3

REPORT INFORMATION
  Report Type: 
  Country: None (occurrence: None)
  Receive Date: 20090702
  Receipt Date: 20090624
  Transmission Date: 20100115
  Serious: Yes (Disabling)
  Sender: FDA-Public Use
  Company Number: BR-BAYER-200917955LA

PATIENT
  Age: 42 Year
  Sex: Female

DRUGS (4)
  1. BETAFERON [Suspect]
     Indication: MULTIPLE SCLEROSIS
     Dosage: TOTAL DAILY DOSE: 9.6 MIU
     Route: 058
     Dates: start: 20041001
  2. ANTIINFLAMMATORY [Concomitant]
     Indication: PAIN IN EXTREMITY
     Route: 048
     Dates: start: 20090614, end: 20090620
  3. CEFALIUM [Concomitant]
     Indication: MIGRAINE
     Dosage: 1 TABLET AS NEEDED
     Route: 048
     Dates: start: 20040101
  4. NEOSALDINA [Concomitant]
     Indication: MIGRAINE
     Dosage: 1 TABLET AS NEEDED
     Route: 048
     Dates: start: 20040101

REACTIONS (6)
  - CYST [None]
  - FALL [None]
  - FIBROMYALGIA [None]
  - INJECTION SITE ERYTHEMA [None]
  - INJECTION SITE PAIN [None]
  - MONOPARESIS [None]
